FAERS Safety Report 7226206-4 (Version None)
Quarter: 2011Q1

REPORT INFORMATION
  Report Type: 
  Country: None (occurrence: None)
  Receive Date: 20110114
  Receipt Date: 20101231
  Transmission Date: 20110831
  Serious: Yes (Other)
  Sender: FDA-Public Use
  Company Number: PHHY2010US89866

PATIENT
  Sex: Male

DRUGS (4)
  1. TYLENOL W/ CODEINE NO. 3 [Suspect]
     Indication: ANKYLOSING SPONDYLITIS
  2. TYLENOL W/ CODEINE NO. 3 [Suspect]
     Indication: ARTHRITIS
  3. DIOVAN [Suspect]
     Indication: HYPERTENSION
     Dosage: 80 MG, UNK
  4. DIOVAN [Suspect]
     Indication: CHEST PAIN

REACTIONS (4)
  - SHOCK [None]
  - TREMOR [None]
  - PAIN [None]
  - CHILLS [None]
